FAERS Safety Report 7826627-2 (Version None)
Quarter: 2011Q4

REPORT INFORMATION
  Report Type: 
  Country: None (occurrence: None)
  Receive Date: 20111020
  Receipt Date: 20111004
  Transmission Date: 20120403
  Serious: No
  Sender: FDA-Public Use
  Company Number: US-MYLANLABS-2011S1016675

PATIENT
  Sex: Male

DRUGS (6)
  1. SIMVASTATIN [Concomitant]
  2. CLONAZEPAM [Concomitant]
  3. DILTIAZEM HCL [Concomitant]
  4. BUPROPION HYDROCHLORIDE [Suspect]
     Indication: DEPRESSION
     Route: 048
     Dates: start: 20110101, end: 20110101
  5. BUPROPION HYDROCHLORIDE [Suspect]
     Route: 048
     Dates: start: 20110101
  6. HYTRIN [Concomitant]

REACTIONS (6)
  - AGITATION [None]
  - CONSTIPATION [None]
  - HYPERHIDROSIS [None]
  - DRY MOUTH [None]
  - WEIGHT DECREASED [None]
  - DISTURBANCE IN ATTENTION [None]
